FAERS Safety Report 11890244 (Version 1)
Quarter: 2016Q1

REPORT INFORMATION
  Report Type: Spontaneous
  Country: US (occurrence: US)
  Receive Date: 20160105
  Receipt Date: 20160105
  Transmission Date: 20160526
  Serious: No
  Sender: FDA-Public Use
  Company Number: US-GLAXOSMITHKLINE-US2015GSK182991

PATIENT
  Age: 88 Year
  Sex: Female
  Weight: 52.15 kg

DRUGS (4)
  1. ASPIRIN. [Concomitant]
     Active Substance: ASPIRIN
  2. ZOVIRAX [Suspect]
     Active Substance: ACYCLOVIR
     Dosage: APPLY FIVE TIMES A DAY FOR 4 DAYS
     Route: 061
     Dates: start: 201512
  3. ZOVIRAX [Suspect]
     Active Substance: ACYCLOVIR
     Indication: GENITAL HERPES
     Dosage: APPLY FIVE TIMES A DAY FOR 4 DAYS
     Route: 061
     Dates: start: 1995
  4. PREMARIN [Concomitant]
     Active Substance: ESTROGENS, CONJUGATED

REACTIONS (4)
  - Condition aggravated [Not Recovered/Not Resolved]
  - Therapeutic response decreased [Not Recovered/Not Resolved]
  - Genital herpes [Not Recovered/Not Resolved]
  - Pain [Not Recovered/Not Resolved]

NARRATIVE: CASE EVENT DATE: 201512
